FAERS Safety Report 7202255-7 (Version None)
Quarter: 2010Q4

REPORT INFORMATION
  Report Type: 
  Country: None (occurrence: None)
  Receive Date: 20101229
  Receipt Date: 20101216
  Transmission Date: 20110411
  Serious: Yes (Death)
  Sender: FDA-Public Use
  Company Number: GR-CELGENEUS-066-CCAZA-10122313

PATIENT

DRUGS (2)
  1. AZACITIDINE [Suspect]
     Route: 050
  2. VALPROATE SODIUM [Suspect]
     Dosage: MICROGRAM/ML
     Route: 065

REACTIONS (1)
  - MYELODYSPLASTIC SYNDROME TRANSFORMATION [None]
